FAERS Safety Report 19441174 (Version 1)
Quarter: 2021Q2

REPORT INFORMATION
  Report Type: Spontaneous
  Country: US (occurrence: US)
  Receive Date: 20210617
  Receipt Date: 20210617
  Transmission Date: 20210717
  Serious: No
  Sender: FDA-Public Use
  Company Number: None

PATIENT
  Age: 55 Year
  Sex: Female
  Weight: 68.5 kg

DRUGS (3)
  1. INFLIXIMAB [Suspect]
     Active Substance: INFLIXIMAB
     Indication: CROHN^S DISEASE
     Dosage: ?          OTHER FREQUENCY:ONE TIME INFUSION;?
     Route: 041
     Dates: start: 20210616, end: 20210616
  2. HYDROCORTISONE 100 MG [Concomitant]
     Dates: start: 20210616, end: 20210616
  3. DIPHENHYDRAMINE 25 MG [Concomitant]
     Dates: start: 20210616, end: 20210616

REACTIONS (1)
  - Throat irritation [None]

NARRATIVE: CASE EVENT DATE: 20210616
